FAERS Safety Report 12762528 (Version 6)
Quarter: 2018Q2

REPORT INFORMATION
  Report Type: Report from Study
  Country: US (occurrence: US)
  Receive Date: 20160920
  Receipt Date: 20180402
  Transmission Date: 20180711
  Serious: No
  Sender: FDA-Public Use
  Company Number: US-INCYTE CORPORATION-2016IN001432

PATIENT
  Age: 66 Year
  Sex: Female
  Weight: 77.7 kg

DRUGS (12)
  1. LISINOPRIL. [Suspect]
     Active Substance: LISINOPRIL
     Indication: PRODUCT USED FOR UNKNOWN INDICATION
     Dosage: UNK
     Dates: end: 20160607
  2. GINGER                             /01646602/ [Concomitant]
     Indication: PRODUCT USED FOR UNKNOWN INDICATION
     Dosage: UNK
     Route: 065
  3. JAKAFI [Suspect]
     Active Substance: RUXOLITINIB
     Indication: POLYCYTHAEMIA VERA
     Dosage: 20 MG
     Route: 048
     Dates: start: 20150923, end: 20180327
  4. MARIJUANA [Concomitant]
     Active Substance: CANNABIS SATIVA SUBSP. INDICA TOP
     Indication: PRODUCT USED FOR UNKNOWN INDICATION
     Dosage: UNK
     Route: 065
  5. PRINZIDE [Concomitant]
     Active Substance: HYDROCHLOROTHIAZIDE\LISINOPRIL
     Indication: HYPERTENSION
     Dosage: 10-12.5 MG, QD
     Dates: start: 2012, end: 20160803
  6. JAKAFI [Suspect]
     Active Substance: RUXOLITINIB
     Dosage: 10 MG (2 TABLETS EVERY MORNING AND 1 TABLET EVERY EVENING)
     Route: 048
     Dates: start: 20151009
  7. PROPRANOLOL [Concomitant]
     Active Substance: PROPRANOLOL HYDROCHLORIDE
     Indication: HYPERTENSION
     Dosage: 60 MG, QD
     Dates: start: 20170421, end: 20170921
  8. ASPIRIN. [Concomitant]
     Active Substance: ASPIRIN
     Indication: POLYCYTHAEMIA VERA
     Dosage: 81 MG, QD
     Route: 065
     Dates: start: 20100115
  9. HYDREA [Concomitant]
     Active Substance: HYDROXYUREA
     Indication: POLYCYTHAEMIA VERA
     Dosage: 500 MG, QOD
     Dates: start: 201312, end: 20150921
  10. JAKAFI [Suspect]
     Active Substance: RUXOLITINIB
     Dosage: 10 MG, BID
     Route: 048
     Dates: start: 20151010
  11. JAKAFI [Suspect]
     Active Substance: RUXOLITINIB
     Dosage: 10 MG (2 TABLETS EVERY MORNING AND 1 TABLET EVERY EVENING)
     Route: 048
     Dates: start: 20161013, end: 20180327
  12. JAKAFI [Suspect]
     Active Substance: RUXOLITINIB
     Dosage: 20 MG, BID
     Route: 048
     Dates: start: 20180328

REACTIONS (4)
  - Migraine [Unknown]
  - Dizziness [Recovered/Resolved]
  - Decreased appetite [Unknown]
  - Vertigo [Unknown]

NARRATIVE: CASE EVENT DATE: 20160421
